FAERS Safety Report 24885033 (Version 2)
Quarter: 2025Q1

REPORT INFORMATION
  Report Type: Spontaneous
  Country: GB (occurrence: GB)
  Receive Date: 20250124
  Receipt Date: 20250218
  Transmission Date: 20250408
  Serious: Yes (Death, Life-Threatening, Hospitalization)
  Sender: PFIZER
  Company Number: GB-PFIZER INC-202500016090

PATIENT
  Age: 73 Year
  Sex: Male

DRUGS (3)
  1. MYLOTARG [Suspect]
     Active Substance: GEMTUZUMAB OZOGAMICIN
     Indication: Acute myeloid leukaemia
     Dates: start: 20240724
  2. CYTARABINE [Suspect]
     Active Substance: CYTARABINE
     Indication: Acute myeloid leukaemia
     Dates: start: 20240723
  3. DAUNORUBICIN [Suspect]
     Active Substance: DAUNORUBICIN
     Indication: Acute myeloid leukaemia

REACTIONS (3)
  - Multiple organ dysfunction syndrome [Fatal]
  - Lower respiratory tract infection [Unknown]
  - Atrial fibrillation [Unknown]

NARRATIVE: CASE EVENT DATE: 20240101
